FAERS Safety Report 13139310 (Version 1)
Quarter: 2017Q1

REPORT INFORMATION
  Report Type: Spontaneous
  Country: US (occurrence: US)
  Receive Date: 20170123
  Receipt Date: 20170123
  Transmission Date: 20170428
  Serious: No
  Sender: FDA-Public Use
  Company Number: US-ASTRAZENECA-2017SE04324

PATIENT
  Age: 26024 Day
  Sex: Female
  Weight: 62.1 kg

DRUGS (3)
  1. ALPHA 1 ANTITRYPSIN PROTEIN [Concomitant]
     Indication: PROTEIN DEFICIENCY
     Route: 042
     Dates: start: 2014
  2. SYMBICORT [Suspect]
     Active Substance: BUDESONIDE\FORMOTEROL FUMARATE DIHYDRATE
     Indication: CHRONIC OBSTRUCTIVE PULMONARY DISEASE
     Dosage: 1 PUFF DAILY
     Route: 055
     Dates: start: 201611
  3. AEROLAST [Concomitant]
     Indication: SINUS DISORDER
     Route: 045
     Dates: start: 2015

REACTIONS (7)
  - Lacrimation increased [Unknown]
  - Intentional product misuse [Unknown]
  - Incorrect product storage [Unknown]
  - Medication error [Unknown]
  - Nasopharyngitis [Unknown]
  - Sinus disorder [Unknown]
  - Drug dose omission [Unknown]

NARRATIVE: CASE EVENT DATE: 201701
